FAERS Safety Report 5685111-5 (Version None)
Quarter: 2008Q1

REPORT INFORMATION
  Report Type: 
  Country: None (occurrence: None)
  Receive Date: 20080328
  Receipt Date: 20080325
  Transmission Date: 20080703
  Serious: Yes (Other)
  Sender: FDA-Public Use
  Company Number: JP-BOEHRINGER INGELHEIM GMBH, GERMANY-2008-BP-04746NB

PATIENT
  Age: 74 Year
  Sex: Female
  Weight: 49 kg

DRUGS (8)
  1. MICARDIS [Suspect]
     Route: 048
  2. RHEUMATREX [Suspect]
     Indication: RHEUMATOID ARTHRITIS
  3. FOLIAMIN [Concomitant]
     Route: 048
  4. PROGRAF [Concomitant]
     Indication: RHEUMATOID ARTHRITIS
     Route: 048
     Dates: start: 20060801
  5. PREDONINE [Concomitant]
     Route: 048
  6. LOXONIN [Concomitant]
     Route: 048
  7. NORVASC [Concomitant]
     Route: 048
  8. TAKEPRON [Concomitant]
     Route: 048

REACTIONS (3)
  - BRONCHOPULMONARY ASPERGILLOSIS [None]
  - HISTIOCYTOSIS HAEMATOPHAGIC [None]
  - LYMPHOPROLIFERATIVE DISORDER [None]
